FAERS Safety Report 17741714 (Version 1)
Quarter: 2020Q2

REPORT INFORMATION
  Report Type: Report from Study
  Country: US (occurrence: US)
  Receive Date: 20200504
  Receipt Date: 20200504
  Transmission Date: 20200714
  Serious: No
  Sender: FDA-Public Use
  Company Number: NVSC2020US120049

PATIENT
  Age: 57 Year
  Sex: Male

DRUGS (1)
  1. ENTRESTO [Suspect]
     Active Substance: SACUBITRIL\VALSARTAN
     Indication: CARDIAC FAILURE
     Dosage: 24 MG, ONCE2SDO
     Route: 048
     Dates: start: 20200405

REACTIONS (2)
  - Abnormal dreams [Unknown]
  - Hypotension [Unknown]

NARRATIVE: CASE EVENT DATE: 202004
